FAERS Safety Report 23341022 (Version 6)
Quarter: 2025Q1

REPORT INFORMATION
  Report Type: Report from Study
  Country: US (occurrence: US)
  Receive Date: 20231227
  Receipt Date: 20250129
  Transmission Date: 20250408
  Serious: Yes (Other)
  Sender: TAKEDA
  Company Number: US-TAKEDA-2023TUS123321

PATIENT
  Sex: Female

DRUGS (10)
  1. MARIBAVIR [Interacting]
     Active Substance: MARIBAVIR
     Indication: Cytomegalovirus infection
     Dosage: 400 MILLIGRAM, BID
     Dates: start: 20231216
  2. MARIBAVIR [Interacting]
     Active Substance: MARIBAVIR
     Dosage: 400 MILLIGRAM, BID
  3. MARIBAVIR [Interacting]
     Active Substance: MARIBAVIR
     Dosage: 400 MILLIGRAM, BID
  4. MARIBAVIR [Interacting]
     Active Substance: MARIBAVIR
     Dosage: 400 MILLIGRAM, BID
  5. MARIBAVIR [Interacting]
     Active Substance: MARIBAVIR
     Dosage: 400 MILLIGRAM, BID
  6. TACROLIMUS [Suspect]
     Active Substance: TACROLIMUS
     Indication: Product used for unknown indication
  7. SYNTHROID [Suspect]
     Active Substance: LEVOTHYROXINE SODIUM
     Indication: Product used for unknown indication
  8. MAGNESIUM OXIDE [Concomitant]
     Active Substance: MAGNESIUM OXIDE
  9. PREDNISONE [Concomitant]
     Active Substance: PREDNISONE
  10. PREDNISONE [Concomitant]
     Active Substance: PREDNISONE
     Dosage: 80 MILLIGRAM, QD

REACTIONS (7)
  - Renal impairment [Unknown]
  - Drug interaction [Unknown]
  - Myalgia [Unknown]
  - Haemoglobin abnormal [Unknown]
  - Drug level decreased [Unknown]
  - Dysgeusia [Unknown]
  - Drug level increased [Unknown]
